FAERS Safety Report 19530886 (Version 1)
Quarter: 2021Q3

REPORT INFORMATION
  Report Type: Other
  Country: US (occurrence: US)
  Receive Date: 20210714
  Receipt Date: 20210714
  Transmission Date: 20211014
  Serious: Yes (Other)
  Sender: FDA-Public Use
  Company Number: US-SAPTALIS PHARMACEUTICALS,LLC-000098

PATIENT
  Age: 72 Year
  Sex: Female

DRUGS (1)
  1. TRIAMCINOLONE [Suspect]
     Active Substance: TRIAMCINOLONE
     Indication: ORBITAL DECOMPRESSION
     Route: 031

REACTIONS (3)
  - Product administration error [Unknown]
  - Retinal artery occlusion [Not Recovered/Not Resolved]
  - Choroidal infarction [Not Recovered/Not Resolved]
